FAERS Safety Report 19866198 (Version 1)
Quarter: 2021Q3

REPORT INFORMATION
  Report Type: Spontaneous
  Country: DE (occurrence: DE)
  Receive Date: 20210922
  Receipt Date: 20210922
  Transmission Date: 20211014
  Serious: Yes (Congenital Anomaly, Other)
  Sender: FDA-Public Use
  Company Number: DE-SUN PHARMACEUTICAL INDUSTRIES LTD-2021RR-311991

PATIENT
  Age: 1 Day
  Sex: Male
  Weight: 3.41 kg

DRUGS (3)
  1. ANTI?D?IMMUNGLOBULIN VOM MENSCHEN [Concomitant]
     Indication: PROPHYLAXIS AGAINST RH ISOIMMUNISATION
     Dosage: UNK
     Route: 064
     Dates: start: 20200902, end: 20200902
  2. SERTRALINE [Suspect]
     Active Substance: SERTRALINE HYDROCHLORIDE
     Indication: DEPRESSION
     Dosage: 75 MG/D SINCE APRIL THAT COULD BE BETWEEN GW 7 0/7 AND 11 1/7
     Route: 064
  3. L?THYROXIN 50 [Concomitant]
     Active Substance: LEVOTHYROXINE SODIUM
     Indication: HYPOTHYROIDISM
     Dosage: 50 [?G/D ]
     Route: 064
     Dates: start: 20200213, end: 20201105

REACTIONS (5)
  - Ventricular septal defect [Unknown]
  - Pulmonary artery stenosis [Unknown]
  - Agitation neonatal [Recovered/Resolved]
  - Foetal exposure during pregnancy [Unknown]
  - Atrial septal defect [Unknown]

NARRATIVE: CASE EVENT DATE: 20201105
